FAERS Safety Report 7265282-X (Version None)
Quarter: 2011Q1

REPORT INFORMATION
  Report Type: 
  Country: None (occurrence: None)
  Receive Date: 20110131
  Receipt Date: 20110118
  Transmission Date: 20110831
  Serious: No
  Sender: FDA-Public Use
  Company Number: US-B.I. PHARMACEUTICALS,INC./RIDGEFIELD-2011-BP-01574BP

PATIENT
  Sex: Female

DRUGS (4)
  1. CATAPRES-TTS-1 [Suspect]
     Indication: HYPERTENSION
     Dosage: 0.3 MG
     Route: 061
     Dates: start: 20100401
  2. MAXZIDE [Concomitant]
     Indication: HYPERTENSION
  3. PROGESTERONE [Concomitant]
     Indication: MENOPAUSE
  4. ESTROGEN CREAM (COMPOUNDED BOTANICALS) [Concomitant]
     Indication: MENOPAUSE

REACTIONS (5)
  - CHEST DISCOMFORT [None]
  - NECK PAIN [None]
  - HEADACHE [None]
  - DRUG INEFFECTIVE [None]
  - HYPERTENSION [None]
